FAERS Safety Report 19609128 (Version 1)
Quarter: 2021Q3

REPORT INFORMATION
  Report Type: Report from Study
  Country: US (occurrence: US)
  Receive Date: 20210726
  Receipt Date: 20210726
  Transmission Date: 20211014
  Serious: Yes (Death)
  Sender: FDA-Public Use
  Company Number: US-BAYER-2013-005043

PATIENT
  Age: 56 Year
  Sex: Female

DRUGS (9)
  1. VERAPAMIL [Suspect]
     Active Substance: VERAPAMIL HYDROCHLORIDE
  2. OXYGEN. [Concomitant]
     Active Substance: OXYGEN
  3. DULOXETINE. [Suspect]
     Active Substance: DULOXETINE
  4. METAXALONE. [Suspect]
     Active Substance: METAXALONE
  5. CAFFEINE. [Concomitant]
     Active Substance: CAFFEINE
  6. PARACETAMOL [Suspect]
     Active Substance: ACETAMINOPHEN
  7. BUTALBITAL [Suspect]
     Active Substance: BUTALBITAL
  8. KEPPRA [Suspect]
     Active Substance: LEVETIRACETAM
  9. NICOTINE. [Concomitant]
     Active Substance: NICOTINE

REACTIONS (2)
  - Respiratory depression [Fatal]
  - Toxicity to various agents [Fatal]
